FAERS Safety Report 20998237 (Version 1)
Quarter: 2022Q2

REPORT INFORMATION
  Report Type: Spontaneous
  Country: US (occurrence: US)
  Receive Date: 20220623
  Receipt Date: 20220623
  Transmission Date: 20220721
  Serious: Yes (Hospitalization)
  Sender: FDA-Public Use
  Company Number: US-NOVARTISPH-NVSC2022US143524

PATIENT
  Age: 70 Year
  Sex: Male

DRUGS (5)
  1. JAKAFI [Suspect]
     Active Substance: RUXOLITINIB
     Indication: Myelofibrosis
     Dosage: 10 MG, QD
     Route: 048
     Dates: start: 202106
  2. JAKAFI [Suspect]
     Active Substance: RUXOLITINIB
     Dosage: 10 MG, BID
     Route: 048
     Dates: start: 202203
  3. DEFERASIROX [Suspect]
     Active Substance: DEFERASIROX
     Indication: Product used for unknown indication
     Dosage: UNK (TAKING 2 TABLETS INSTEAD OF 3 TABLETS AS PRESCRIBED AND SOMETIMES SKIPS A DAY)
     Route: 065
  4. DEFERASIROX [Suspect]
     Active Substance: DEFERASIROX
     Dosage: 500 MG
     Route: 065
  5. OXYGEN [Suspect]
     Active Substance: OXYGEN
     Indication: Chronic obstructive pulmonary disease
     Dosage: UNK, AT NIGHT 6 WEEKS AGO
     Route: 065

REACTIONS (3)
  - Pulmonary oedema [Unknown]
  - Chronic obstructive pulmonary disease [Unknown]
  - Dry throat [Unknown]

NARRATIVE: CASE EVENT DATE: 20220613
